FAERS Safety Report 5632609-1 (Version None)
Quarter: 2008Q1

REPORT INFORMATION
  Report Type: 
  Country: None (occurrence: None)
  Receive Date: 20080220
  Receipt Date: 20080208
  Transmission Date: 20080703
  Serious: Yes (Other)
  Sender: FDA-Public Use
  Company Number: US-PFIZER INC-2008003564

PATIENT
  Sex: Female
  Weight: 54.9 kg

DRUGS (3)
  1. CHANTIX [Suspect]
     Indication: SMOKING CESSATION THERAPY
     Route: 048
  2. TOPAMAX [Concomitant]
     Route: 048
  3. TRAZODONE HCL [Concomitant]
     Route: 048

REACTIONS (5)
  - ACTIVITIES OF DAILY LIVING IMPAIRED [None]
  - ANXIETY [None]
  - CRYING [None]
  - DEPRESSION [None]
  - SUICIDAL IDEATION [None]
